FAERS Safety Report 12762499 (Version 1)
Quarter: 2016Q3

REPORT INFORMATION
  Report Type: Spontaneous
  Country: FR (occurrence: FR)
  Receive Date: 20160920
  Receipt Date: 20160920
  Transmission Date: 20161109
  Serious: Yes (Hospitalization)
  Sender: FDA-Public Use
  Company Number: FR-PFIZER INC-2016421608

PATIENT
  Age: 55 Year
  Sex: Male

DRUGS (11)
  1. COTRIMOXAZOLE [Suspect]
     Active Substance: SULFAMETHOXAZOLE\TRIMETHOPRIM
     Indication: ANTIBIOTIC PROPHYLAXIS
     Dosage: 1 DF, THRICE WEEKLY
     Route: 048
     Dates: start: 201605, end: 20160720
  2. ORACILLINE /00001801/ [Suspect]
     Active Substance: PENICILLIN V
     Dosage: UNK
     Route: 048
     Dates: start: 201605, end: 20160722
  3. DEXAMETHASONE /00016002/ [Concomitant]
     Active Substance: DEXAMETHASONE SODIUM PHOSPHATE
     Dosage: TWICE WEEKLY (3 WEEKS OF 4)
  4. ZELITREX [Suspect]
     Active Substance: VALACYCLOVIR HYDROCHLORIDE
     Dosage: UNK
     Route: 048
     Dates: start: 201605, end: 20160722
  5. DARATUMUMAB [Concomitant]
     Active Substance: DARATUMUMAB
     Dosage: ONCE WEEKLY, THEN TWICE WEEKLY
  6. LEDERFOLINE [Suspect]
     Active Substance: LEUCOVORIN CALCIUM
     Dosage: UNK
     Route: 048
     Dates: start: 201605, end: 20160722
  7. THALIDOMIDE [Concomitant]
     Active Substance: THALIDOMIDE
     Dosage: 1 DF, DAILY
  8. KARDEGIC [Concomitant]
     Active Substance: ASPIRIN LYSINE
     Dosage: UNK
     Dates: start: 201605
  9. INEXIUM /01479302/ [Suspect]
     Active Substance: ESOMEPRAZOLE MAGNESIUM
     Dosage: UNK
     Route: 048
     Dates: start: 201605, end: 20160722
  10. VELCADE [Concomitant]
     Active Substance: BORTEZOMIB
     Dosage: PER CYCLE
  11. AMLOR [Concomitant]
     Active Substance: AMLODIPINE BESYLATE
     Dosage: UNK
     Dates: start: 201605

REACTIONS (1)
  - Drug reaction with eosinophilia and systemic symptoms [Recovered/Resolved]

NARRATIVE: CASE EVENT DATE: 20160714
